FAERS Safety Report 5190098-8 (Version None)
Quarter: 2006Q4

REPORT INFORMATION
  Report Type: 
  Country: None (occurrence: None)
  Receive Date: 20061222
  Receipt Date: 20061214
  Transmission Date: 20070319
  Serious: Yes (Hospitalization)
  Sender: FDA-Public Use
  Company Number: US-JNJFOC-20060105368

PATIENT
  Sex: Female
  Weight: 75.3 kg

DRUGS (1)
  1. ORTHO EVRA [Suspect]
     Indication: CONTRACEPTION
     Route: 062

REACTIONS (22)
  - ARTHROPOD BITE [None]
  - ASTHMA [None]
  - BACK PAIN [None]
  - CENTRAL VENOUS PRESSURE INCREASED [None]
  - CYANOSIS [None]
  - DEEP VEIN THROMBOSIS [None]
  - HEADACHE [None]
  - HYPERCOAGULATION [None]
  - INFLUENZA LIKE ILLNESS [None]
  - INTERNATIONAL NORMALISED RATIO DECREASED [None]
  - INTERNATIONAL NORMALISED RATIO INCREASED [None]
  - MITRAL VALVE INCOMPETENCE [None]
  - MUSCULOSKELETAL PAIN [None]
  - PAIN IN EXTREMITY [None]
  - PNEUMONIA [None]
  - PNEUMONITIS [None]
  - PROTHROMBIN TIME PROLONGED [None]
  - PULMONARY EMBOLISM [None]
  - PULMONARY INFARCTION [None]
  - TACHYCARDIA [None]
  - THROMBOPHLEBITIS SUPERFICIAL [None]
  - TRICUSPID VALVE INCOMPETENCE [None]
